FAERS Safety Report 9429131 (Version 1)
Quarter: 2013Q3

REPORT INFORMATION
  Report Type: Report from Study
  Country: US (occurrence: US)
  Receive Date: 20130730
  Receipt Date: 20130730
  Transmission Date: 20140515
  Serious: Yes (Hospitalization)
  Sender: FDA-Public Use
  Company Number: US-JNJFOC-20130714394

PATIENT
  Sex: Male
  Weight: 108.86 kg

DRUGS (5)
  1. STELARA [Suspect]
     Indication: PSORIATIC ARTHROPATHY
     Route: 058
     Dates: start: 20130722
  2. STELARA [Suspect]
     Indication: PSORIATIC ARTHROPATHY
     Route: 058
     Dates: start: 2010, end: 2013
  3. ENBREL [Concomitant]
     Indication: PSORIATIC ARTHROPATHY
     Route: 058
     Dates: start: 2013, end: 201307
  4. NORVASC [Concomitant]
     Dates: start: 20130722
  5. NORVASC [Concomitant]
     Dates: end: 20130722

REACTIONS (4)
  - Parathyroid disorder [Recovered/Resolved]
  - Enzyme level increased [Unknown]
  - Foot deformity [Recovered/Resolved]
  - Off label use [Unknown]
